FAERS Safety Report 8546218-8 (Version None)
Quarter: 2012Q3

REPORT INFORMATION
  Report Type: 
  Country: None (occurrence: None)
  Receive Date: 20120727
  Receipt Date: 20120712
  Transmission Date: 20120928
  Serious: Yes (Hospitalization)
  Sender: FDA-Public Use
  Company Number: MX-JUTA-2012-12511

PATIENT
  Age: 26 Year
  Sex: Female

DRUGS (2)
  1. RISPERIDONE [Suspect]
     Indication: HUNTINGTON'S DISEASE
     Dosage: 2 MG DAILY
     Route: 065
  2. OLANZAPINE [Suspect]
     Indication: HUNTINGTON'S DISEASE
     Dosage: TITRATED TO 20 MG DAILY
     Route: 065

REACTIONS (2)
  - CONDITION AGGRAVATED [None]
  - CATATONIA [None]
